FAERS Safety Report 6328591-4 (Version None)
Quarter: 2009Q3

REPORT INFORMATION
  Report Type: 
  Country: None (occurrence: None)
  Receive Date: 20090824
  Receipt Date: 20090824
  Transmission Date: 20100115
  Serious: Yes (Other)
  Sender: FDA-Public Use
  Company Number: None

PATIENT

DRUGS (1)
  1. AMPHETAMINES [Suspect]
     Indication: ATTENTION DEFICIT/HYPERACTIVITY DISORDER
     Dosage: 15 MG 1 CAP DAILY PO
     Route: 048
     Dates: start: 20090731

REACTIONS (3)
  - AGITATION [None]
  - PANIC REACTION [None]
  - PARANOIA [None]
